FAERS Safety Report 11062584 (Version 1)
Quarter: 2015Q2

REPORT INFORMATION
  Report Type: Spontaneous
  Country: US (occurrence: US)
  Receive Date: 20150424
  Receipt Date: 20150424
  Transmission Date: 20150821
  Serious: Yes (Other)
  Sender: FDA-Public Use
  Company Number: PHHY2015US045313

PATIENT
  Age: 50 Year
  Sex: Female

DRUGS (1)
  1. HYDRALAZINE [Suspect]
     Active Substance: HYDRALAZINE HYDROCHLORIDE
     Indication: HYPERTENSION
     Dosage: 50 MG, TID
     Route: 048

REACTIONS (9)
  - Cardiac tamponade [Recovering/Resolving]
  - Chest pain [Recovering/Resolving]
  - Venous pressure jugular increased [Recovering/Resolving]
  - Pericardial effusion [Recovered/Resolved]
  - Lupus-like syndrome [Recovering/Resolving]
  - Dyspnoea [Recovering/Resolving]
  - Pleuritic pain [Recovering/Resolving]
  - Arthralgia [Recovering/Resolving]
  - Pericarditis [Recovering/Resolving]
